FAERS Safety Report 14644048 (Version 2)
Quarter: 2018Q1

REPORT INFORMATION
  Report Type: Spontaneous
  Country: CH (occurrence: CH)
  Receive Date: 20180315
  Receipt Date: 20180322
  Transmission Date: 20180509
  Serious: Yes (Other)
  Sender: FDA-Public Use
  Company Number: CH-PFIZER INC-2018101179

PATIENT
  Sex: Female

DRUGS (6)
  1. DOXORUBICIN HCL [Suspect]
     Active Substance: DOXORUBICIN HYDROCHLORIDE
     Dosage: 50 MG/M2, CYCLIC
     Route: 064
  2. PREDNISONE. [Suspect]
     Active Substance: PREDNISONE
     Dosage: 100 MG, DAILY (ON DAYS 1-5)
     Route: 064
  3. FILGRASTIM [Suspect]
     Active Substance: FILGRASTIM
     Dosage: 300 UG, CYCLIC (ON DAYS 6-11 AFTER IMMUNE-CHEMOTHERAPY)
     Route: 064
  4. VINCRISTINE SULFATE. [Suspect]
     Active Substance: VINCRISTINE SULFATE
     Dosage: 1.4 MG/M2, CYCLIC
     Route: 064
  5. CYCLOPHOSPHAMIDE. [Suspect]
     Active Substance: CYCLOPHOSPHAMIDE
     Dosage: 750 MG/M2, CYCLIC
     Route: 064
  6. RITUXIMAB. [Suspect]
     Active Substance: RITUXIMAB
     Dosage: 375 MG/M2, CYCLIC
     Route: 064

REACTIONS (3)
  - B-lymphocyte count decreased [Recovered/Resolved]
  - Premature baby [Unknown]
  - Maternal exposure during pregnancy [Unknown]
